FAERS Safety Report 24298765 (Version 1)
Quarter: 2024Q3

REPORT INFORMATION
  Report Type: Spontaneous
  Country: US (occurrence: None)
  Receive Date: 20240907
  Receipt Date: 20240907
  Transmission Date: 20241016
  Serious: Yes (Hospitalization)
  Sender: Public
  Company Number: None

PATIENT
  Age: 54 Year
  Sex: Female
  Weight: 59.7 kg

DRUGS (4)
  1. FLUOROURACIL [Suspect]
     Active Substance: FLUOROURACIL
     Indication: Diarrhoea
  2. IRINOTECAN (CPT-11, CAMPTOSAR [Concomitant]
  3. LEUCOVORIN CALCIUM [Concomitant]
     Active Substance: LEUCOVORIN CALCIUM
  4. ELOXATIN [Concomitant]
     Active Substance: OXALIPLATIN

REACTIONS (11)
  - Diarrhoea haemorrhagic [None]
  - Faeces discoloured [None]
  - Vomiting [None]
  - Dysuria [None]
  - Dizziness [None]
  - Dizziness postural [None]
  - Neutrophil count decreased [None]
  - Platelet count decreased [None]
  - Haemoglobin decreased [None]
  - Nausea [None]
  - Therapy interrupted [None]

NARRATIVE: CASE EVENT DATE: 20240828
